FAERS Safety Report 16561505 (Version 5)
Quarter: 2021Q1

REPORT INFORMATION
  Report Type: Report from Study
  Country: ID (occurrence: ID)
  Receive Date: 20190711
  Receipt Date: 20210122
  Transmission Date: 20210419
  Serious: Yes (Death, Disabling, Other)
  Sender: FDA-Public Use
  Company Number: ID-ASTRAZENECA-2019SE97730

PATIENT
  Sex: Female

DRUGS (4)
  1. TAGRISSO [Suspect]
     Active Substance: OSIMERTINIB
     Route: 048
     Dates: start: 201906
  2. IRESSA [Suspect]
     Active Substance: GEFITINIB
     Route: 048
  3. IRESSA [Suspect]
     Active Substance: GEFITINIB
     Route: 048
     Dates: start: 20190702
  4. TAGRISSO [Suspect]
     Active Substance: OSIMERTINIB
     Route: 048
     Dates: start: 20190703

REACTIONS (15)
  - Asthenia [Unknown]
  - Apathy [Unknown]
  - Drug ineffective [Unknown]
  - Malignant neoplasm progression [Unknown]
  - Brain oedema [Unknown]
  - Lung cancer metastatic [Unknown]
  - Brain injury [Unknown]
  - Hypersomnia [Unknown]
  - Carbohydrate antigen 125 increased [Unknown]
  - Dyspnoea [Fatal]
  - Carcinoembryonic antigen increased [Unknown]
  - Paralysis [Unknown]
  - Anuria [Fatal]
  - Drug resistance [Unknown]
  - Brain neoplasm [Fatal]
